FAERS Safety Report 23288996 (Version 1)
Quarter: 2023Q4

REPORT INFORMATION
  Report Type: Spontaneous
  Country: US (occurrence: None)
  Receive Date: 20231212
  Receipt Date: 20231212
  Transmission Date: 20240109
  Serious: Yes (Death)
  Sender: FDA-Public Use
  Company Number: None

PATIENT
  Age: 62 Year
  Sex: Female

DRUGS (11)
  1. PRALUENT [Suspect]
     Active Substance: ALIROCUMAB
     Indication: Hypercholesterolaemia
     Dosage: 75MG Q 2 WKS SUBCUTANEOUS?
     Route: 058
     Dates: start: 20221209
  2. FUROSEMIDE [Concomitant]
     Active Substance: FUROSEMIDE
  3. PANTOPROAZOLE [Concomitant]
  4. SPIRONOLACTONE [Concomitant]
     Active Substance: SPIRONOLACTONE
  5. CARAFATE [Concomitant]
     Active Substance: SUCRALFATE
  6. METOPROLOL SUCCINATE [Concomitant]
     Active Substance: METOPROLOL SUCCINATE
  7. ROSUVASTATIN [Concomitant]
     Active Substance: ROSUVASTATIN
  8. ALBUTERAL HFA INH [Concomitant]
  9. CONTOUR NEXT TEST STRIPS [Concomitant]
  10. SERTRALINE [Concomitant]
     Active Substance: SERTRALINE HYDROCHLORIDE
  11. MAGNESIUM [Concomitant]
     Active Substance: MAGNESIUM

REACTIONS (1)
  - Death [None]
